FAERS Safety Report 19103755 (Version 1)
Quarter: 2021Q2

REPORT INFORMATION
  Report Type: Spontaneous
  Country: US (occurrence: US)
  Receive Date: 20210407
  Receipt Date: 20210407
  Transmission Date: 20210717
  Serious: Yes (Other)
  Sender: FDA-Public Use
  Company Number: US-CASPER PHARMA LLC-2021CAS000159

PATIENT
  Age: 32 Year
  Sex: Male

DRUGS (2)
  1. AZATHIOPRINE. [Suspect]
     Active Substance: AZATHIOPRINE
     Indication: IMMUNOSUPPRESSANT DRUG THERAPY
     Dosage: 100 MILLIGRAM
     Route: 065
  2. AZATHIOPRINE. [Suspect]
     Active Substance: AZATHIOPRINE
     Dosage: 100 MG
     Route: 065

REACTIONS (2)
  - Hypersensitivity vasculitis [Recovered/Resolved]
  - Hypersensitivity [Recovered/Resolved]
